FAERS Safety Report 6122532-0 (Version None)
Quarter: 2009Q1

REPORT INFORMATION
  Report Type: 
  Country: None (occurrence: None)
  Receive Date: 20090318
  Receipt Date: 20090126
  Transmission Date: 20090719
  Serious: No
  Sender: FDA-Public Use
  Company Number: US-ASTRAZENECA-2008UW27829

PATIENT
  Age: 78 Year
  Sex: Female

DRUGS (3)
  1. SYMBICORT [Suspect]
     Indication: LUNG DISORDER
     Dosage: 160/4.5 MCG 120 INHALATIONS
     Route: 055
  2. IPRATROPIUM BROMIDE [Concomitant]
  3. ALBUTEROL SULFATE [Concomitant]

REACTIONS (2)
  - DRUG INEFFECTIVE [None]
  - PRODUCT QUALITY ISSUE [None]
